FAERS Safety Report 22619592 (Version 1)
Quarter: 2023Q2

REPORT INFORMATION
  Report Type: Spontaneous
  Country: US (occurrence: US)
  Receive Date: 20230620
  Receipt Date: 20230620
  Transmission Date: 20230721
  Serious: Yes (Other)
  Sender: FDA-Public Use
  Company Number: US-GSK-US2023083068

PATIENT

DRUGS (1)
  1. TRELEGY ELLIPTA [Suspect]
     Active Substance: FLUTICASONE FUROATE\UMECLIDINIUM BROMIDE\VILANTEROL TRIFENATATE
     Indication: Emphysema
     Dosage: 1 PUFF(S), QD 100/62.5/25MCG
     Route: 055
     Dates: start: 202001

REACTIONS (2)
  - Myocardial infarction [Unknown]
  - Stent placement [Unknown]

NARRATIVE: CASE EVENT DATE: 20230214
